FAERS Safety Report 10175366 (Version 2)
Quarter: 2014Q2

REPORT INFORMATION
  Report Type: Spontaneous
  Country: US (occurrence: US)
  Receive Date: 20140515
  Receipt Date: 20140611
  Transmission Date: 20141212
  Serious: Yes (Death, Hospitalization)
  Sender: FDA-Public Use
  Company Number: US-BAXTER-2014BAX023886

PATIENT
  Sex: Female

DRUGS (4)
  1. DIANEAL LOW CALCIUM [Suspect]
     Indication: PERITONEAL DIALYSIS
     Route: 033
     Dates: start: 201305, end: 20140508
  2. DIANEAL LOW CALCIUM [Suspect]
     Indication: RENAL FAILURE CHRONIC
  3. DIANEAL LOW CALCIUM [Suspect]
     Indication: PERITONEAL DIALYSIS
     Route: 033
     Dates: start: 201305, end: 20140508
  4. DIANEAL LOW CALCIUM [Suspect]
     Indication: RENAL FAILURE CHRONIC

REACTIONS (4)
  - Respiratory failure [Fatal]
  - Septic shock [Fatal]
  - Sepsis [Fatal]
  - Hypotension [Unknown]
